FAERS Safety Report 6488363-7 (Version None)
Quarter: 2009Q4

REPORT INFORMATION
  Report Type: 
  Country: None (occurrence: None)
  Receive Date: 20091210
  Receipt Date: 20090828
  Transmission Date: 20100525
  Serious: No
  Sender: FDA-Public Use
  Company Number: US-AMGEN-KDL362168

PATIENT

DRUGS (11)
  1. ENBREL [Suspect]
     Indication: RHEUMATOID ARTHRITIS
  2. HUMIRA [Suspect]
     Indication: RHEUMATOID ARTHRITIS
     Route: 058
     Dates: start: 20090401
  3. IBANDRONATE SODIUM [Concomitant]
  4. PANTOPRAZOLE [Concomitant]
  5. EZETIMIBE [Concomitant]
  6. FEXOFENADINE [Concomitant]
  7. MORPHINE [Concomitant]
  8. TYLOX [Concomitant]
  9. METHOTREXATE [Concomitant]
     Route: 048
  10. TRIAMCINOLONE [Concomitant]
  11. FOLIC ACID [Concomitant]

REACTIONS (11)
  - BACK INJURY [None]
  - DRUG DOSE OMISSION [None]
  - DRUG INEFFECTIVE [None]
  - FALL [None]
  - HEAD INJURY [None]
  - HEADACHE [None]
  - LIMB CRUSHING INJURY [None]
  - MUSCULOSKELETAL STIFFNESS [None]
  - RASH [None]
  - SKIN LACERATION [None]
  - WOUND HAEMORRHAGE [None]
